FAERS Safety Report 5839434-7 (Version None)
Quarter: 2008Q3

REPORT INFORMATION
  Report Type: 
  Country: None (occurrence: None)
  Receive Date: 20080807
  Receipt Date: 20080728
  Transmission Date: 20090109
  Serious: Yes (Hospitalization)
  Sender: FDA-Public Use
  Company Number: 2008-175699-NL

PATIENT
  Age: 35 Year
  Sex: Male

DRUGS (4)
  1. MIRTAZAPINE [Suspect]
     Indication: POLYSUBSTANCE DEPENDENCE
     Dosage: 30 MG
     Dates: start: 20060110
  2. OXCARBAZEPINE [Suspect]
     Indication: POLYSUBSTANCE DEPENDENCE
     Dosage: 900 MG
     Dates: start: 20060110, end: 20060114
  3. DIAZEPAM [Concomitant]
  4. METHADONE HYDROCHLORIDE [Concomitant]

REACTIONS (2)
  - DRUG INTERACTION [None]
  - HYPONATRAEMIA [None]
